FAERS Safety Report 25368588 (Version 1)
Quarter: 2025Q2

REPORT INFORMATION
  Report Type: Spontaneous
  Country: CN (occurrence: CN)
  Receive Date: 20250528
  Receipt Date: 20250528
  Transmission Date: 20250717
  Serious: Yes (Other)
  Sender: PFIZER
  Company Number: CN-PFIZER INC-PV202500062301

PATIENT
  Age: 81 Year
  Sex: Male

DRUGS (2)
  1. LINEZOLID [Suspect]
     Active Substance: LINEZOLID
     Indication: Evidence based treatment
     Dosage: 600 MG, 2X/DAY
  2. LINEZOLID [Suspect]
     Active Substance: LINEZOLID
     Indication: Bacterial infection

REACTIONS (1)
  - Suspected drug-induced liver injury [Recovering/Resolving]
